FAERS Safety Report 7731414-X (Version None)
Quarter: 2011Q3

REPORT INFORMATION
  Report Type: 
  Country: None (occurrence: None)
  Receive Date: 20110906
  Receipt Date: 20110829
  Transmission Date: 20111222
  Serious: Yes (Other)
  Sender: FDA-Public Use
  Company Number: AE-B.I. PHARMACEUTICALS,INC./RIDGEFIELD-2011-BP-21092BP

PATIENT

DRUGS (2)
  1. AMIODARONE HCL [Concomitant]
  2. PRADAXA [Suspect]
     Dosage: 150 MG

REACTIONS (2)
  - INTERNATIONAL NORMALISED RATIO INCREASED [None]
  - OPERATIVE HAEMORRHAGE [None]
